FAERS Safety Report 18082653 (Version 1)
Quarter: 2020Q3

REPORT INFORMATION
  Report Type: Spontaneous
  Country: FR (occurrence: FR)
  Receive Date: 20200728
  Receipt Date: 20200728
  Transmission Date: 20201103
  Serious: Yes (Other)
  Sender: FDA-Public Use
  Company Number: FR-US-PROVELL PHARMACEUTICALS LLC-9175283

PATIENT
  Age: 38 Year
  Sex: Female

DRUGS (6)
  1. LEVOTHYROX [Suspect]
     Active Substance: LEVOTHYROXINE
     Dosage: THERAPY START DATE: 29 AUG 2017?NEW FORMULATION
     Dates: end: 201709
  2. LEVOTHYROX [Suspect]
     Active Substance: LEVOTHYROXINE
     Dosage: OLD FORMULATION?THERAPY START DATE: SEP 2017
     Dates: end: 2017
  3. LEVOTHYROX [Suspect]
     Active Substance: LEVOTHYROXINE
     Indication: HYPOTHYROIDISM
     Dosage: NEW FORMULATION
     Dates: start: 2017, end: 2017
  4. LEVOTHYROX [Suspect]
     Active Substance: LEVOTHYROXINE
     Dosage: OLD FORMULATION?THERAPY START DATE: SEP 2017
     Dates: end: 201709
  5. LEVOTHYROX [Suspect]
     Active Substance: LEVOTHYROXINE
     Dosage: THERAPY START DATE: 04 AUG 2017?NEW FORMULATION
     Dates: end: 201708
  6. LEVOTHYROX [Suspect]
     Active Substance: LEVOTHYROXINE
     Dosage: THERAPY START DATE: JUL 2017?NEW FORMULATION

REACTIONS (41)
  - Feeling abnormal [Unknown]
  - Dyspnoea [Not Recovered/Not Resolved]
  - Thyroxine free decreased [Recovered/Resolved]
  - Myalgia [Not Recovered/Not Resolved]
  - Eye swelling [Not Recovered/Not Resolved]
  - Abdominal pain upper [Not Recovered/Not Resolved]
  - Depressed mood [Not Recovered/Not Resolved]
  - Constipation [Unknown]
  - Impaired work ability [Not Recovered/Not Resolved]
  - Impaired quality of life [Not Recovered/Not Resolved]
  - Tri-iodothyronine free decreased [Not Recovered/Not Resolved]
  - Fatigue [Not Recovered/Not Resolved]
  - Emotional distress [Not Recovered/Not Resolved]
  - Abdominal distension [Unknown]
  - Diarrhoea [Unknown]
  - Blood thyroid stimulating hormone decreased [Recovered/Resolved]
  - Heart rate decreased [Not Recovered/Not Resolved]
  - Migraine [Not Recovered/Not Resolved]
  - Dry throat [Unknown]
  - Headache [Unknown]
  - Feeling cold [Unknown]
  - Dizziness [Unknown]
  - Rash [Not Recovered/Not Resolved]
  - Heart rate increased [Unknown]
  - Malaise [Not Recovered/Not Resolved]
  - Fear [Not Recovered/Not Resolved]
  - Musculoskeletal stiffness [Unknown]
  - Feeling hot [Unknown]
  - Eye pain [Not Recovered/Not Resolved]
  - Ocular hyperaemia [Not Recovered/Not Resolved]
  - Weight increased [Unknown]
  - Muscle spasms [Not Recovered/Not Resolved]
  - Insomnia [Not Recovered/Not Resolved]
  - Dry mouth [Not Recovered/Not Resolved]
  - Lacrimation increased [Unknown]
  - Gastrointestinal fungal infection [Unknown]
  - Palpitations [Unknown]
  - Toothache [Not Recovered/Not Resolved]
  - Social avoidant behaviour [Not Recovered/Not Resolved]
  - Asthenia [Not Recovered/Not Resolved]
  - Skin plaque [Unknown]

NARRATIVE: CASE EVENT DATE: 2017
